FAERS Safety Report 21297511 (Version 1)
Quarter: 2022Q3

REPORT INFORMATION
  Report Type: Spontaneous
  Country: US (occurrence: US)
  Receive Date: 20220906
  Receipt Date: 20220906
  Transmission Date: 20221026
  Serious: No
  Sender: FDA-Public Use
  Company Number: US-drreddys-SPO/USA/22/0154090

PATIENT
  Age: 17 Year

DRUGS (2)
  1. ZENATANE [Suspect]
     Active Substance: ISOTRETINOIN
     Indication: Acne
     Dosage: RMA ISSUE DATE: 18 NOVEMBER 2021 03:20:42 PM, 24 JANUARY 2022 01:29:42 PM, 28 FEBRUARY 2022 03:03:49
  2. ZENATANE [Suspect]
     Active Substance: ISOTRETINOIN
     Dosage: RMA ISSUE DATE: 02 JUNE 2022 11:49:28 AM, 07 JULY 2022 12:16:48 PM

REACTIONS (1)
  - Treatment noncompliance [Unknown]
